FAERS Safety Report 6148095-1 (Version None)
Quarter: 2009Q2

REPORT INFORMATION
  Report Type: 
  Country: None (occurrence: None)
  Receive Date: 20090408
  Receipt Date: 20090403
  Transmission Date: 20091009
  Serious: Yes (Other)
  Sender: FDA-Public Use
  Company Number: D0060811A

PATIENT
  Sex: Female
  Weight: 78 kg

DRUGS (2)
  1. ELONTRIL [Suspect]
     Indication: DEPRESSION
     Dosage: 150MG PER DAY
     Route: 048
     Dates: start: 20090227, end: 20090320
  2. CYMBALTA [Concomitant]
     Indication: DEPRESSION
     Dosage: 60MG PER DAY
     Route: 048
     Dates: end: 20090303

REACTIONS (7)
  - ANXIETY [None]
  - APPETITE DISORDER [None]
  - INSOMNIA [None]
  - MUSCLE TWITCHING [None]
  - NIGHTMARE [None]
  - RESTLESSNESS [None]
  - SUICIDAL IDEATION [None]
